FAERS Safety Report 17999799 (Version 2)
Quarter: 2020Q4

REPORT INFORMATION
  Report Type: Spontaneous
  Country: US (occurrence: US)
  Receive Date: 20200709
  Receipt Date: 20201107
  Transmission Date: 20210113
  Serious: Yes (Death, Other)
  Sender: FDA-Public Use
  Company Number: US-TEVA-2020-US-1800070

PATIENT
  Age: 54 Year
  Sex: Male

DRUGS (7)
  1. FLUTICASONE PROPIONATE. [Concomitant]
     Active Substance: FLUTICASONE PROPIONATE
     Indication: HYPERSENSITIVITY
     Dosage: 50 MICROGRAM DAILY;
     Dates: start: 2018
  2. VALSARTAN W/HYDROCHLOROTHIAZIDE AURBINDO [Suspect]
     Active Substance: HYDROCHLOROTHIAZIDE\VALSARTAN
     Indication: HYPERTENSION
     Dosage: VALSARTAN 160MG/HYDROCHLOROTHIAZIDE 25MG
     Route: 065
     Dates: start: 20160326, end: 20180417
  3. VALSARTAN W/HYDROCHLOROTHIAZIDE MYLAN [Suspect]
     Active Substance: HYDROCHLOROTHIAZIDE\VALSARTAN
     Indication: HYPERTENSION
     Dosage: VALSARTAN 160MG/HYDROCHLOROTHIAZIDE 25MG
     Route: 065
     Dates: start: 20140804, end: 20141113
  4. ASPIRIN. [Concomitant]
     Active Substance: ASPIRIN
     Indication: PAIN
  5. VALSARTAN W/HYDROCHLOROTHIAZIDE TEVA [Suspect]
     Active Substance: HYDROCHLOROTHIAZIDE\VALSARTAN
     Indication: HYPERTENSION
     Dosage: VALSARTAN 160MG/HYDROCHLOROTHIAZIDE 25MG
     Route: 065
     Dates: start: 20141109, end: 20160322
  6. VALSARTAN W/HYDROCHLOROTHIAZIDE ZHEJIANG [Suspect]
     Active Substance: HYDROCHLOROTHIAZIDE\VALSARTAN
     Indication: HYPERTENSION
     Dosage: VALSARTAN 160MG/HYDROCHLOROTHIAZIDE 25MG
     Route: 065
     Dates: start: 20180420, end: 20180728
  7. ASPIRIN. [Concomitant]
     Active Substance: ASPIRIN
     Indication: HEADACHE
     Dosage: 200 MG AS NEEDED

REACTIONS (1)
  - Hepatic cancer stage IV [Not Recovered/Not Resolved]
